FAERS Safety Report 18709555 (Version 5)
Quarter: 2024Q2

REPORT INFORMATION
  Report Type: Spontaneous
  Country: PL (occurrence: PL)
  Receive Date: 20210106
  Receipt Date: 20240411
  Transmission Date: 20240716
  Serious: No
  Sender: FDA-Public Use
  Company Number: PL-GLPHARMA-20.1509

PATIENT

DRUGS (9)
  1. GABAPENTIN [Suspect]
     Active Substance: GABAPENTIN
     Indication: Pain
     Dosage: 300 MG, 3X/DAY (EVERY 8 HOURS)
     Route: 065
  2. PREGABALIN [Suspect]
     Active Substance: PREGABALIN
     Indication: Pain
     Dosage: 150 MG, DAILY
     Route: 065
  3. PREGABALIN [Suspect]
     Active Substance: PREGABALIN
     Dosage: 150 MG, 2X/DAY
     Route: 065
  4. OXYCODONE [Suspect]
     Active Substance: OXYCODONE\OXYCODONE HYDROCHLORIDE
     Indication: Pain
     Dosage: 80 MG, 3X/DAY
     Route: 048
  5. OXYCODONE [Suspect]
     Active Substance: OXYCODONE\OXYCODONE HYDROCHLORIDE
     Dosage: 100 MG, 3X/DAY
     Route: 065
  6. FENTANYL [Suspect]
     Active Substance: FENTANYL\FENTANYL CITRATE
     Indication: Breakthrough pain
     Dosage: 200 UG, AS NEEDED
     Route: 002
  7. FENTANYL [Suspect]
     Active Substance: FENTANYL\FENTANYL CITRATE
     Dosage: 6 DF, DAILY (FREQUENTLY USED 6 TABLETS/DAY)
     Route: 065
  8. FENTANYL [Suspect]
     Active Substance: FENTANYL\FENTANYL CITRATE
     Dosage: QD, 3-4 TABLETS DAILY
     Route: 065
  9. FENTANYL [Suspect]
     Active Substance: FENTANYL\FENTANYL CITRATE
     Dosage: UNK, 1X/DAY
     Route: 065

REACTIONS (1)
  - Constipation [Recovered/Resolved]
